FAERS Safety Report 7062695-6 (Version None)
Quarter: 2010Q4

REPORT INFORMATION
  Report Type: 
  Country: None (occurrence: None)
  Receive Date: 20101026
  Receipt Date: 20091221
  Transmission Date: 20110411
  Serious: No
  Sender: FDA-Public Use
  Company Number: US-PFIZER INC-2009314813

PATIENT
  Sex: Male
  Weight: 95.3 kg

DRUGS (14)
  1. LIPITOR [Suspect]
     Indication: BLOOD CHOLESTEROL INCREASED
     Dosage: 10 MG, 1X/DAY
     Route: 048
     Dates: start: 20080101, end: 20091201
  2. CRESTOR [Suspect]
     Indication: BLOOD CHOLESTEROL INCREASED
     Dosage: 5 MG, UNK
     Route: 048
     Dates: start: 20090701, end: 20090701
  3. AVAPRO [Concomitant]
     Indication: HYPERTENSION
     Dosage: 300 MG, 1X/DAY
     Route: 048
  4. FUROSEMIDE [Concomitant]
     Indication: FLUID RETENTION
     Dosage: 40 MG, 1X/DAY
     Route: 048
  5. FUROSEMIDE [Concomitant]
     Dosage: 50 MG, 1X/DAY
  6. ENALAPRIL MALEATE [Concomitant]
     Indication: FLUID RETENTION
     Dosage: 20 MG, 1X/DAY
     Route: 048
  7. METFORMIN HYDROCHLORIDE [Concomitant]
     Indication: DIABETES MELLITUS
     Dosage: 500 MG, 1X/DAY
     Route: 048
  8. METFORMIN HYDROCHLORIDE [Concomitant]
     Dosage: 1000 MG, 1X/DAY
  9. LOVAZA [Concomitant]
     Dosage: 1200 MG, 1X/DAY
     Route: 048
  10. CALCIUM LACTATE [Concomitant]
     Dosage: 250 MG, 1X/DAY
     Route: 048
  11. CENTRUM SILVER [Concomitant]
     Dosage: DAILY
     Route: 048
  12. ASCORBIC ACID [Concomitant]
     Dosage: 2000 MG, 2X/DAY
     Route: 048
  13. FISH OIL [Concomitant]
     Dosage: 1200 MG, UNK
  14. CALCIUM [Concomitant]
     Dosage: 250 MG, 2X/DAY

REACTIONS (3)
  - DRUG INEFFECTIVE [None]
  - FLUID RETENTION [None]
  - MUSCLE SPASMS [None]
